FAERS Safety Report 13819734 (Version 6)
Quarter: 2018Q1

REPORT INFORMATION
  Report Type: Spontaneous
  Country: JP (occurrence: JP)
  Receive Date: 20170801
  Receipt Date: 20180120
  Transmission Date: 20180508
  Serious: Yes (Death, Other)
  Sender: FDA-Public Use
  Company Number: JP-009507513-1707JPN002372J

PATIENT
  Age: 64 Year
  Sex: Male
  Weight: 57 kg

DRUGS (7)
  1. KEYTRUDA [Suspect]
     Active Substance: PEMBROLIZUMAB
     Indication: LUNG ADENOCARCINOMA
     Dosage: 200 MG, Q3W
     Route: 041
     Dates: start: 20170613, end: 20170613
  2. OXYCONTIN [Concomitant]
     Active Substance: OXYCODONE HYDROCHLORIDE
     Indication: CANCER PAIN
     Dosage: 40 MG, BID
     Route: 048
     Dates: start: 20170516, end: 20170619
  3. CELECOX [Concomitant]
     Active Substance: CELECOXIB
     Indication: CANCER PAIN
     Dosage: 200 MG, BID
     Route: 048
     Dates: start: 20170421, end: 20170619
  4. BETAMETHASONE. [Concomitant]
     Active Substance: BETAMETHASONE
     Indication: DECREASED APPETITE
     Dosage: 2 MG, QD
     Route: 048
     Dates: start: 20170608, end: 20170619
  5. REBAMIPIDE [Concomitant]
     Active Substance: REBAMIPIDE
     Indication: GASTRITIS
     Dosage: 100 MG, TID
     Route: 048
     Dates: start: 20170525, end: 20170619
  6. NEXIUM [Concomitant]
     Active Substance: ESOMEPRAZOLE MAGNESIUM
     Indication: PROPHYLAXIS
     Dosage: 20 MG, QD
     Route: 048
     Dates: start: 20170516, end: 20170619
  7. OXINORM (ORGOTEIN) [Concomitant]
     Active Substance: ORGOTEIN
     Indication: CANCER PAIN
     Dosage: 10 MG, PRN
     Route: 048
     Dates: start: 20170516, end: 20170619

REACTIONS (2)
  - Hypoxia [Fatal]
  - Interstitial lung disease [Fatal]

NARRATIVE: CASE EVENT DATE: 20170619
